FAERS Safety Report 8112658-4 (Version None)
Quarter: 2012Q1

REPORT INFORMATION
  Report Type: 
  Country: None (occurrence: None)
  Receive Date: 20120131
  Receipt Date: 20120118
  Transmission Date: 20120608
  Serious: Yes (Death, Hospitalization, Other)
  Sender: FDA-Public Use
  Company Number: 2012MA000887

PATIENT
  Sex: Female

DRUGS (1)
  1. DIGOXIN [Suspect]
     Dosage: 0.125 MG;QD;PO
     Route: 048
     Dates: start: 20060117, end: 20080125

REACTIONS (14)
  - OEDEMA PERIPHERAL [None]
  - TOXICITY TO VARIOUS AGENTS [None]
  - TACHYPNOEA [None]
  - MEMORY IMPAIRMENT [None]
  - BRADYCARDIA [None]
  - BLOOD PRESSURE DIASTOLIC DECREASED [None]
  - HEADACHE [None]
  - PYREXIA [None]
  - SYNCOPE [None]
  - CARDIOMEGALY [None]
  - DYSPNOEA [None]
  - ACUTE MYOCARDIAL INFARCTION [None]
  - SICK SINUS SYNDROME [None]
  - PNEUMONIA [None]
